FAERS Safety Report 10405244 (Version 7)
Quarter: 2016Q4

REPORT INFORMATION
  Report Type: Report from Study
  Country: ES (occurrence: ES)
  Receive Date: 20140825
  Receipt Date: 20161101
  Transmission Date: 20170206
  Serious: Yes (Death, Hospitalization)
  Sender: FDA-Public Use
  Company Number: ES-ROCHE-1242751

PATIENT
  Age: 71 Year
  Sex: Male
  Weight: 79 kg

DRUGS (9)
  1. PARACETAMOL [Concomitant]
     Active Substance: ACETAMINOPHEN
     Indication: PAIN
     Route: 042
     Dates: start: 20130607
  2. OXALIPLATIN. [Suspect]
     Active Substance: OXALIPLATIN
     Indication: COLORECTAL CANCER
     Dosage: LAST DOSE PRIOR TO SAE: 28/MAY/2013.
     Route: 042
     Dates: start: 20130528
  3. GABAPENTIN. [Concomitant]
     Active Substance: GABAPENTIN
     Indication: PAIN
     Route: 048
     Dates: start: 20130607
  4. NYSTATINE [Concomitant]
     Dosage: 1500000 U/ML
     Route: 048
     Dates: start: 20130610
  5. OMEPRAZOL [Concomitant]
     Active Substance: OMEPRAZOLE
     Route: 048
     Dates: start: 20130607
  6. BEVACIZUMAB [Suspect]
     Active Substance: BEVACIZUMAB
     Indication: COLORECTAL CANCER
     Dosage: LAST DOSE PRIOR TO SAE: 28/MAY/2013.
     Route: 042
     Dates: start: 20130528
  7. METAMIZOL [Concomitant]
     Active Substance: METAMIZOLE SODIUM
     Indication: PAIN
     Route: 048
     Dates: start: 20130607
  8. CAPECITABINE. [Suspect]
     Active Substance: CAPECITABINE
     Indication: COLORECTAL CANCER
     Dosage: LAST DOSE PRIOR TO SAE: 28/MAY/2013.?DOSE: 3-0-4 DAILY
     Route: 042
     Dates: start: 20130528, end: 20130607
  9. CODEISAN (SPAIN) [Concomitant]
     Indication: COUGH
     Route: 048
     Dates: start: 20130605

REACTIONS (5)
  - Renal failure [Recovered/Resolved]
  - Thrombocytopenia [Not Recovered/Not Resolved]
  - Septic shock [Fatal]
  - Diarrhoea [Recovered/Resolved]
  - Neutropenia [Not Recovered/Not Resolved]

NARRATIVE: CASE EVENT DATE: 20130610
